FAERS Safety Report 20440410 (Version 2)
Quarter: 2022Q1

REPORT INFORMATION
  Report Type: Spontaneous
  Country: US (occurrence: US)
  Receive Date: 20220207
  Receipt Date: 20220224
  Transmission Date: 20220423
  Serious: No
  Sender: FDA-Public Use
  Company Number: US-TAKEDA-2022TUS005826

PATIENT
  Age: 65 Year
  Sex: Male

DRUGS (1)
  1. NINLARO [Suspect]
     Active Substance: IXAZOMIB CITRATE
     Indication: Plasma cell myeloma
     Dosage: 4 MILLIGRAM, QD
     Route: 048
     Dates: start: 20210810

REACTIONS (5)
  - Rash maculo-papular [Unknown]
  - Eye swelling [Unknown]
  - Vision blurred [Unknown]
  - Lacrimation increased [Unknown]
  - Off label use [Unknown]

NARRATIVE: CASE EVENT DATE: 20211201
